FAERS Safety Report 6158943-7 (Version None)
Quarter: 2009Q2

REPORT INFORMATION
  Report Type: 
  Country: None (occurrence: None)
  Receive Date: 20090417
  Receipt Date: 20090409
  Transmission Date: 20091009
  Serious: Yes (Other)
  Sender: FDA-Public Use
  Company Number: US-NOVOPROD-286093

PATIENT
  Sex: Female

DRUGS (3)
  1. NOVOLOG [Suspect]
     Indication: INSULIN-REQUIRING TYPE 2 DIABETES MELLITUS
     Dosage: 20 IU, BID
     Route: 058
     Dates: start: 20060101, end: 20090301
  2. NOVOLOG [Suspect]
     Dosage: 24 IU, BID
     Route: 058
     Dates: start: 20090301
  3. TOPROL-XL [Concomitant]
     Indication: CARDIAC DISORDER
     Dosage: UNK, QD
     Route: 048
     Dates: start: 20050101

REACTIONS (7)
  - BLOOD GLUCOSE INCREASED [None]
  - DEVICE FAILURE [None]
  - FALL [None]
  - GLYCOSYLATED HAEMOGLOBIN INCREASED [None]
  - HEART RATE DECREASED [None]
  - HYPOTENSION [None]
  - UPPER LIMB FRACTURE [None]
